FAERS Safety Report 5920229-0 (Version None)
Quarter: 2008Q4

REPORT INFORMATION
  Report Type: 
  Country: None (occurrence: None)
  Receive Date: 20081014
  Receipt Date: 20081006
  Transmission Date: 20090506
  Serious: Yes (Other)
  Sender: FDA-Public Use
  Company Number: 2008JP004622

PATIENT
  Age: 45 Year
  Sex: Female

DRUGS (1)
  1. PROTOPIC [Suspect]
     Indication: DERMATITIS ATOPIC
     Dosage: /D, TOPICAL
     Route: 061
     Dates: start: 19990101

REACTIONS (1)
  - LYMPHADENOPATHY [None]
